FAERS Safety Report 10036532 (Version 1)
Quarter: 2014Q1

REPORT INFORMATION
  Report Type: Report from Study
  Country: FR (occurrence: FR)
  Receive Date: 20140326
  Receipt Date: 20140326
  Transmission Date: 20141002
  Serious: Yes (Hospitalization)
  Sender: FDA-Public Use
  Company Number: FR-ROCHE-1367480

PATIENT
  Age: 78 Year
  Sex: Female

DRUGS (9)
  1. RITUXIMAB [Suspect]
     Indication: RHEUMATOID ARTHRITIS
     Route: 065
     Dates: start: 20070309
  2. RITUXIMAB [Suspect]
     Route: 065
     Dates: start: 20070323
  3. RITUXIMAB [Suspect]
     Dosage: ONLY 1 INFUSION
     Route: 065
     Dates: start: 20080404
  4. RITUXIMAB [Suspect]
     Dosage: ONLY 1 INFUSION
     Route: 065
     Dates: start: 20100430
  5. RITUXIMAB [Suspect]
     Dosage: ONLY 1 INFUSION
     Route: 065
     Dates: start: 20101108
  6. CORTANCYL [Concomitant]
     Route: 065
  7. CORTANCYL [Concomitant]
     Route: 065
  8. CORTANCYL [Concomitant]
     Route: 065
  9. CORTANCYL [Concomitant]
     Route: 065

REACTIONS (12)
  - Tendon rupture [Recovered/Resolved]
  - Aphasia [Recovered/Resolved]
  - Confusional state [Recovered/Resolved]
  - Renal failure acute [Recovered/Resolved]
  - Meningitis bacterial [Recovered/Resolved]
  - Atrial fibrillation [Recovered/Resolved]
  - Infusion related reaction [Recovered/Resolved]
  - C-reactive protein abnormal [Recovered/Resolved]
  - Inflammation [Recovered/Resolved]
  - Gastroenteritis [Recovered/Resolved]
  - Vitritis [Unknown]
  - Hyperthermia [Recovered/Resolved]
